FAERS Safety Report 24153163 (Version 3)
Quarter: 2024Q3

REPORT INFORMATION
  Report Type: Spontaneous
  Country: DE (occurrence: DE)
  Receive Date: 20240730
  Receipt Date: 20240909
  Transmission Date: 20241017
  Serious: Yes (Hospitalization)
  Sender: NOVARTIS
  Company Number: None

PATIENT
  Age: 74 Year
  Sex: Female

DRUGS (16)
  1. ENTRESTO [Interacting]
     Active Substance: SACUBITRIL\VALSARTAN
     Indication: Product used for unknown indication
     Dosage: 1 DOSAGE FORM (ST?RKE: 56,53 MG1-0-1-0 )
     Route: 065
     Dates: end: 20240710
  2. LITHIUM CARBONATE [Interacting]
     Active Substance: LITHIUM CARBONATE
     Indication: Product used for unknown indication
     Dosage: 2 DOSAGE FORM, QD (2-0-0-0;ST?RKE: 12,2 MMOL -VORHER WURDE QUILONUM 1 TABLETTE T?GLICH UND EINMAL DI
     Route: 065
     Dates: end: 20240710
  3. LITHIUM CARBONATE [Interacting]
     Active Substance: LITHIUM CARBONATE
     Dosage: 1 DOSAGE FORM, QD (1-0-0)
     Route: 065
  4. ASPIRIN [Concomitant]
     Active Substance: ASPIRIN
     Indication: Product used for unknown indication
     Dosage: 100 MG (1-0-0-0)
     Route: 065
  5. MELATONIN [Concomitant]
     Active Substance: MELATONIN
     Indication: Product used for unknown indication
     Dosage: 4 MG (0-0-0-2 )
     Route: 065
  6. PRASUGREL HYDROCHLORIDE [Concomitant]
     Active Substance: PRASUGREL HYDROCHLORIDE
     Indication: Product used for unknown indication
     Dosage: 10 MG (1-0-0-0; BIS ZUM 13.05.2025)
     Route: 065
  7. TORSEMIDE [Concomitant]
     Active Substance: TORSEMIDE
     Indication: Product used for unknown indication
     Dosage: 10 MG (1-0-0-0)
     Route: 065
  8. BISOPROLOL [Concomitant]
     Active Substance: BISOPROLOL\BISOPROLOL FUMARATE
     Indication: Product used for unknown indication
     Dosage: UNK
     Route: 065
  9. EPLERENONE [Concomitant]
     Active Substance: EPLERENONE
     Indication: Product used for unknown indication
     Dosage: 25 MG, QD (1-0-0-0)
     Route: 065
  10. BISOPROLOL FUMARATE [Concomitant]
     Active Substance: BISOPROLOL FUMARATE
     Indication: Product used for unknown indication
     Dosage: 2.5 MG, QD (1-0-0-0)
     Route: 065
  11. PIPAMPERONE HYDROCHLORIDE [Concomitant]
     Active Substance: PIPAMPERONE HYDROCHLORIDE
     Indication: Product used for unknown indication
     Dosage: 1 DOSAGE FORM (1 TAB. B. BED)
     Route: 065
  12. QUETIAPINE [Concomitant]
     Active Substance: QUETIAPINE
     Indication: Product used for unknown indication
     Dosage: 100 MG, QD (0-0-1-0)
     Route: 065
  13. ATORVASTATIN [Concomitant]
     Active Substance: ATORVASTATIN
     Indication: Product used for unknown indication
     Dosage: 20 MG, QD (0-0-1-0)
     Route: 065
  14. VENLAFAXIN AAA [Concomitant]
     Indication: Product used for unknown indication
     Dosage: 150 MG, QD (1-0-0-0)
     Route: 065
  15. PANTOPRAZOLE SODIUM [Concomitant]
     Active Substance: PANTOPRAZOLE SODIUM
     Indication: Gastric ulcer
     Dosage: 40 MG (1-0-1-0)
     Route: 065
  16. METAMIZOLE SODIUM [Concomitant]
     Active Substance: METAMIZOLE SODIUM
     Indication: Product used for unknown indication
     Dosage: 500 MG, Q8H (1-1-1-0)
     Route: 065

REACTIONS (8)
  - Condition aggravated [Recovered/Resolved]
  - Tremor [Recovered/Resolved]
  - Vomiting [Recovered/Resolved]
  - Nausea [Recovered/Resolved]
  - Asthenia [Recovered/Resolved]
  - Toxicity to various agents [Recovered/Resolved]
  - Presyncope [Recovered/Resolved]
  - Drug interaction [Recovered/Resolved]

NARRATIVE: CASE EVENT DATE: 20240710
